FAERS Safety Report 21095433 (Version 2)
Quarter: 2022Q3

REPORT INFORMATION
  Report Type: Report from Study
  Country: US (occurrence: US)
  Receive Date: 20220718
  Receipt Date: 20220729
  Transmission Date: 20221026
  Serious: Yes (Hospitalization)
  Sender: FDA-Public Use
  Company Number: US-KARYOPHARM-2022KPT000685

PATIENT

DRUGS (13)
  1. SELINEXOR [Suspect]
     Active Substance: SELINEXOR
     Indication: Myelofibrosis
     Dosage: 80 MG, WEEKLY
     Route: 048
     Dates: start: 20220608, end: 20220614
  2. MINERALS\VITAMINS [Concomitant]
     Active Substance: MINERALS\VITAMINS
     Indication: Supplementation therapy
     Dosage: 1 TABLET, QD
     Route: 048
     Dates: start: 20210423
  3. DEFERASIROX [Concomitant]
     Active Substance: DEFERASIROX
     Indication: Iron overload
     Dosage: 360 MG, QD
     Route: 048
     Dates: start: 20210423
  4. DEFERASIROX [Concomitant]
     Active Substance: DEFERASIROX
     Indication: Anaemia
  5. FOLIC ACID [Concomitant]
     Active Substance: FOLIC ACID
     Indication: Prophylaxis
     Dosage: 1 MG, QD
     Route: 048
     Dates: start: 20210223
  6. OLANZAPINE [Concomitant]
     Active Substance: OLANZAPINE
     Indication: Prophylaxis of nausea and vomiting
     Dosage: 5 MG, DAYS 1-3 OF TREATMENT AND AS NEEDED AT BEDTIME
     Route: 048
     Dates: start: 20220102
  7. ONDANSETRON [Concomitant]
     Active Substance: ONDANSETRON
     Indication: Prophylaxis of nausea and vomiting
     Dosage: 8 MG, DAYS 1-3 OF TREATMENT
     Route: 048
     Dates: start: 20190107
  8. IBUPROFEN [Concomitant]
     Active Substance: IBUPROFEN
     Indication: Pain
     Dosage: 200 MG, TID
     Route: 048
     Dates: start: 2017
  9. RANITIDINE [Concomitant]
     Active Substance: RANITIDINE
     Indication: Rhinitis allergic
     Dosage: 150 MG, QD
     Route: 048
     Dates: start: 20130313
  10. ROSUVASTATIN [Concomitant]
     Active Substance: ROSUVASTATIN
     Indication: Type V hyperlipidaemia
     Dosage: 10 MG, QD
     Route: 048
     Dates: start: 20130313
  11. SENOKOT [Concomitant]
     Active Substance: SENNOSIDES
     Indication: Constipation prophylaxis
     Dosage: 8.6 MG, PRN
     Route: 048
     Dates: start: 20220105
  12. REMERON [Concomitant]
     Active Substance: MIRTAZAPINE
     Indication: Decreased appetite
     Dosage: 15 MG, QD
     Route: 048
     Dates: start: 20220609
  13. DARBEPOETIN ALFA [Concomitant]
     Active Substance: DARBEPOETIN ALFA
     Dosage: 250 MG, 1X/2 WEEKS
     Route: 058

REACTIONS (1)
  - Febrile neutropenia [Recovered/Resolved]

NARRATIVE: CASE EVENT DATE: 20220626
